FAERS Safety Report 11240354 (Version 1)
Quarter: 2015Q3

REPORT INFORMATION
  Report Type: Spontaneous
  Country: US (occurrence: None)
  Receive Date: 20150701
  Receipt Date: 20150701
  Transmission Date: 20151125
  Serious: Yes (Hospitalization)
  Sender: FDA-Public Use
  Company Number: None

PATIENT
  Age: 68 Year
  Sex: Male
  Weight: 93.7 kg

DRUGS (2)
  1. LISINOPRIL. [Suspect]
     Active Substance: LISINOPRIL
     Indication: DIABETES MELLITUS
     Dosage: 40MG, EVERYDAY, PO
     Route: 048
     Dates: start: 20050523, end: 20140121
  2. LISINOPRIL. [Suspect]
     Active Substance: LISINOPRIL
     Indication: HYPERTENSION
     Dosage: 40MG, EVERYDAY, PO
     Route: 048
     Dates: start: 20050523, end: 20140121

REACTIONS (1)
  - Angioedema [None]

NARRATIVE: CASE EVENT DATE: 20140121
